FAERS Safety Report 6865023-1 (Version None)
Quarter: 2010Q3

REPORT INFORMATION
  Report Type: 
  Country: None (occurrence: None)
  Receive Date: 20100721
  Receipt Date: 20080407
  Transmission Date: 20110219
  Serious: No
  Sender: FDA-Public Use
  Company Number: US-PFIZER INC-2008031895

PATIENT
  Sex: Female
  Weight: 109.09 kg

DRUGS (6)
  1. CHANTIX [Suspect]
     Indication: SMOKING CESSATION THERAPY
     Dates: start: 20080319
  2. ACETYLSALICYLIC ACID [Concomitant]
  3. SERTRALINE HCL [Concomitant]
  4. PREVACID [Concomitant]
  5. AMITRIPTYLINE HYDROCHLORIDE [Concomitant]
  6. XANAX [Concomitant]

REACTIONS (1)
  - CONSTIPATION [None]
